FAERS Safety Report 21211330 (Version 2)
Quarter: 2022Q3

REPORT INFORMATION
  Report Type: Report from Study
  Country: US (occurrence: US)
  Receive Date: 20220815
  Receipt Date: 20220907
  Transmission Date: 20221026
  Serious: Yes (Other)
  Sender: FDA-Public Use
  Company Number: US-GILEAD-2022-0593521

PATIENT
  Sex: Female

DRUGS (2)
  1. AMBRISENTAN [Suspect]
     Active Substance: AMBRISENTAN
     Indication: Pulmonary hypertension
     Dosage: 10 MG, QD
     Route: 065
     Dates: start: 20180202
  2. XARELTO [Concomitant]
     Active Substance: RIVAROXABAN

REACTIONS (3)
  - Atrial fibrillation [Unknown]
  - Arrhythmia [Unknown]
  - Sinus disorder [Not Recovered/Not Resolved]
